FAERS Safety Report 10717446 (Version 1)
Quarter: 2015Q1

REPORT INFORMATION
  Report Type: Spontaneous
  Country: FR (occurrence: FR)
  Receive Date: 20150116
  Receipt Date: 20150116
  Transmission Date: 20150721
  Serious: Yes (Hospitalization)
  Sender: FDA-Public Use
  Company Number: FR-PFIZER INC-2015014458

PATIENT
  Age: 53 Year
  Sex: Female

DRUGS (7)
  1. SOLU-MEDROL [Suspect]
     Active Substance: METHYLPREDNISOLONE SODIUM SUCCINATE
     Indication: PREMEDICATION
     Dosage: 1 DF, 1X/DAY
     Route: 041
     Dates: start: 20141219, end: 20141219
  2. TAXOL [Suspect]
     Active Substance: PACLITAXEL
     Indication: INVASIVE DUCTAL BREAST CARCINOMA
     Dosage: UNK
     Dates: start: 20141205
  3. POLARAMINE [Suspect]
     Active Substance: DEXCHLORPHENIRAMINE MALEATE
     Indication: PREMEDICATION
     Dosage: 1 DF, SINGLE
     Route: 041
     Dates: start: 20141219, end: 20141219
  4. TAXOL [Suspect]
     Active Substance: PACLITAXEL
     Dosage: 120 MG, SINGLE
     Route: 041
     Dates: start: 20141219, end: 20141219
  5. AZANTAC [Suspect]
     Active Substance: RANITIDINE HYDROCHLORIDE
     Indication: PREMEDICATION
     Dosage: 1 DF, 1X/DAY
     Route: 041
     Dates: start: 20141219, end: 20141219
  6. ZOPHREN [Suspect]
     Active Substance: ONDANSETRON
     Indication: PREMEDICATION
     Dosage: 1 DF, 1X/DAY
     Route: 041
     Dates: start: 20141219, end: 20141219
  7. ZOPHREN [Suspect]
     Active Substance: ONDANSETRON
     Dosage: UNK

REACTIONS (4)
  - Erythema [Recovered/Resolved]
  - Palpitations [Recovered/Resolved]
  - Feeling abnormal [Recovered/Resolved]
  - Tachycardia [Recovered/Resolved]

NARRATIVE: CASE EVENT DATE: 20141219
